FAERS Safety Report 6677918-2 (Version None)
Quarter: 2010Q2

REPORT INFORMATION
  Report Type: 
  Country: None (occurrence: None)
  Receive Date: 20100412
  Receipt Date: 20100330
  Transmission Date: 20101027
  Serious: Yes (Life-Threatening, Hospitalization)
  Sender: FDA-Public Use
  Company Number: AT-ELI_LILLY_AND_COMPANY-AT201003008651

PATIENT
  Age: 75 Year
  Sex: Female
  Weight: 69 kg

DRUGS (15)
  1. FORTEO [Suspect]
     Indication: OSTEOPOROSIS
     Dosage: 20 UG, DAILY (1/D)
     Route: 058
     Dates: start: 20080311, end: 20090801
  2. CAL D VITA [Concomitant]
     Indication: OSTEOPOROSIS
     Dosage: 1200 MG, DAILY (1/D)
     Route: 048
  3. OLEOVIT-D3 [Concomitant]
     Indication: OSTEOPOROSIS
     Dosage: 5 GTT, WEEKLY (1/W)
     Route: 048
  4. NORVASC [Concomitant]
     Indication: HYPERTENSION
     Dosage: 5 MG, DAILY (1/D)
     Route: 048
  5. NEXIUM [Concomitant]
     Indication: GASTRITIS PROPHYLAXIS
     Dosage: 20 MG, DAILY (1/D)
     Route: 048
  6. PLAVIX [Concomitant]
     Indication: ACUTE CORONARY SYNDROME
     Dosage: 75 MG, DAILY (1/D)
     Route: 048
  7. ASPIRIN [Concomitant]
     Indication: ACUTE CORONARY SYNDROME
     Dosage: 100 MG, DAILY (1/D)
     Route: 048
  8. LASIX [Concomitant]
     Indication: CARDIAC FAILURE
     Dosage: 20 MG, DAILY (1/D)
     Route: 048
  9. APREDNISLON [Concomitant]
     Indication: OSTEOARTHRITIS
     Dosage: 12.5 MG, DAILY (1/D)
     Route: 048
  10. MEXALEN [Concomitant]
     Indication: BACK PAIN
     Dosage: 500 MG, AS NEEDED
     Route: 048
  11. MEPRIL                             /00574902/ [Concomitant]
     Indication: HYPERTENSION
     Dosage: 20 MG, DAILY (1/D)
     Route: 048
  12. CIPRALEX [Concomitant]
     Indication: DEPRESSION
     Dosage: 10 MG, DAILY (1/D)
     Route: 048
  13. METOPROLOL TARTRATE [Concomitant]
     Indication: PROPHYLAXIS
     Dosage: 100 MG, DAILY (1/D)
     Route: 048
  14. SIMVASTATIN [Concomitant]
     Indication: HYPERCHOLESTEROLAEMIA
     Dosage: 20 MG, DAILY (1/D)
     Route: 048
  15. NOVALGIN /06276704/ [Concomitant]
     Indication: OSTEOARTHRITIS
     Dosage: 30 GTT,
     Route: 048

REACTIONS (2)
  - ACUTE CORONARY SYNDROME [None]
  - ACUTE MYOCARDIAL INFARCTION [None]
